FAERS Safety Report 11421468 (Version 5)
Quarter: 2015Q4

REPORT INFORMATION
  Report Type: Report from Study
  Country: ZA (occurrence: ZA)
  Receive Date: 20150826
  Receipt Date: 20151005
  Transmission Date: 20160304
  Serious: Yes (Life-Threatening, Hospitalization, Other)
  Sender: FDA-Public Use
  Company Number: ZA-GILEAD-2015-0168643

PATIENT
  Age: 39 Year
  Sex: Female
  Weight: 71.4 kg

DRUGS (7)
  1. ALUVIA [Concomitant]
     Active Substance: LOPINAVIR\RITONAVIR
     Indication: HIV INFECTION
     Dosage: UNK, BID
     Route: 048
     Dates: start: 2008, end: 20150814
  2. ALUVIA [Concomitant]
     Active Substance: LOPINAVIR\RITONAVIR
     Dosage: 4 DF, QD
     Dates: start: 20150907
  3. VITAMIN B COMPLEX [Concomitant]
     Active Substance: CYANOCOBALAMIN\DEXPANTHENOL\NIACINAMIDE\PYRIDOXINE HYDROCHLORIDE\RIBOFLAVIN 5^-PHOSPHATE SODIUM\THIAMINE HYDROCHLORIDE\VITAMIN B COMPLEX
     Indication: VITAMIN SUPPLEMENTATION
     Dosage: UNK, QD
     Route: 048
     Dates: start: 201408, end: 20150814
  4. EMTRICITABINE/TENOFOVIR DISOPROXIL FUMARATE [Suspect]
     Active Substance: EMTRICITABINE\TENOFOVIR DISOPROXIL
     Indication: HIV INFECTION
     Dosage: 200/300, MG, BID
     Route: 048
     Dates: start: 20150717, end: 20150907
  5. VITAMIN C [Concomitant]
     Active Substance: ASCORBIC ACID
     Indication: VITAMIN SUPPLEMENTATION
     Dosage: UNK, QD
     Route: 048
     Dates: start: 201405, end: 20150814
  6. PREGAMAL [Concomitant]
     Indication: ANAEMIA
     Dosage: UNK, BID
     Route: 048
     Dates: start: 201407, end: 20150814
  7. LANSOPRAZOLE. [Concomitant]
     Active Substance: LANSOPRAZOLE
     Indication: GASTRITIS
     Dosage: UNK, QD
     Route: 048
     Dates: start: 2008, end: 20150814

REACTIONS (4)
  - Renal impairment [Recovered/Resolved]
  - Pneumocystis jirovecii pneumonia [Unknown]
  - Anaemia [Recovered/Resolved]
  - Metabolic acidosis [Not Recovered/Not Resolved]

NARRATIVE: CASE EVENT DATE: 20150814
